FAERS Safety Report 20777770 (Version 2)
Quarter: 2023Q1

REPORT INFORMATION
  Report Type: Report from Study
  Country: CO (occurrence: CO)
  Receive Date: 20220503
  Receipt Date: 20230125
  Transmission Date: 20230418
  Serious: Yes (Other)
  Sender: FDA-Public Use
  Company Number: CO-TAKEDA-2020TUS028586

PATIENT
  Age: 54 Year
  Sex: Female
  Weight: 69 kg

DRUGS (1)
  1. VEDOLIZUMAB [Suspect]
     Active Substance: VEDOLIZUMAB
     Indication: Colitis ulcerative
     Dosage: 300 MILLIGRAM
     Route: 042
     Dates: start: 20200610

REACTIONS (16)
  - Haematochezia [Recovering/Resolving]
  - Somnolence [Not Recovered/Not Resolved]
  - Malaise [Not Recovered/Not Resolved]
  - Dizziness [Recovering/Resolving]
  - Tonsillar inflammation [Not Recovered/Not Resolved]
  - Headache [Recovered/Resolved]
  - Gastrointestinal motility disorder [Not Recovered/Not Resolved]
  - Diarrhoea [Recovering/Resolving]
  - Weight increased [Unknown]
  - Body temperature increased [Recovering/Resolving]
  - Rhinorrhoea [Recovering/Resolving]
  - Decreased appetite [Recovering/Resolving]
  - Chills [Unknown]
  - Abdominal distension [Recovering/Resolving]
  - Back pain [Recovering/Resolving]
  - Oropharyngeal pain [Unknown]

NARRATIVE: CASE EVENT DATE: 20200722
